FAERS Safety Report 24278143 (Version 2)
Quarter: 2024Q3

REPORT INFORMATION
  Report Type: Report from Study
  Country: DE (occurrence: DE)
  Receive Date: 20240903
  Receipt Date: 20240910
  Transmission Date: 20241016
  Serious: Yes (Death, Hospitalization, Other)
  Sender: BAXTER
  Company Number: DE-BAXTER-2024BAX023921

PATIENT
  Age: 72 Year
  Sex: Male

DRUGS (4)
  1. AMINO ACIDS\DEXTROSE\ELECTROLYTES NOS\SOYBEAN OIL [Suspect]
     Active Substance: AMINO ACIDS\DEXTROSE\ELECTROLYTES NOS\SOYBEAN OIL
     Indication: Parenteral nutrition
     Dosage: 1085 ML AT UNSPECIFIED FREQUENCY VIA CENTRAL VENOUS ROUTE
     Route: 042
     Dates: start: 20240802, end: 20240831
  2. CERNEVIT [Suspect]
     Active Substance: VITAMINS
     Indication: Parenteral nutrition
     Dosage: 750 MG AT UNSPECIFIED FREQUENCY VIA CENTRAL VENOUS ROUTE
     Route: 042
     Dates: start: 20240802, end: 20240831
  3. ELECTROLYTES NOS\MINERALS [Suspect]
     Active Substance: ELECTROLYTES NOS\MINERALS
     Indication: Parenteral nutrition
     Dosage: (MANUFACTURER: LABORATOIRE AGUETTANT S.A.S,) 10 ML AT UNSPECIFIED FREQUENCY VIA CENTRAL VENOUS ROUTE
     Route: 042
     Dates: start: 20240802, end: 20240831
  4. UNSPECIFIED INGREDIENT [Suspect]
     Active Substance: UNSPECIFIED INGREDIENT
     Route: 065

REACTIONS (3)
  - Haematemesis [Fatal]
  - Gastrointestinal haemorrhage [Fatal]
  - Vomiting [Fatal]

NARRATIVE: CASE EVENT DATE: 20240826
